FAERS Safety Report 10560802 (Version 4)
Quarter: 2015Q4

REPORT INFORMATION
  Report Type: Spontaneous
  Country: US (occurrence: US)
  Receive Date: 20141103
  Receipt Date: 20151211
  Transmission Date: 20160304
  Serious: Yes (Hospitalization, Other)
  Sender: FDA-Public Use
  Company Number: US-GLAXOSMITHKLINE-US2014GSK013696

PATIENT
  Age: 63 Year
  Sex: Female

DRUGS (5)
  1. FLOLAN [Suspect]
     Active Substance: EPOPROSTENOL SODIUM
     Indication: PULMONARY HYPERTENSION
     Dosage: UNK, CO
     Dates: start: 20120113
  2. FLOLAN [Suspect]
     Active Substance: EPOPROSTENOL SODIUM
     Dosage: 34 DF, UNK
     Route: 042
  3. FLOLAN [Suspect]
     Active Substance: EPOPROSTENOL SODIUM
     Indication: COR PULMONALE CHRONIC
     Dosage: DOSE: 34 NG/KG/MIN CO, CONCENTRATION: 45,000 NG/ML, VIAL STRENGTH: 1.5 MG, PUMP RATE: NOT REPORTED
     Route: 042
     Dates: start: 20111228
  4. REVATIO [Concomitant]
     Active Substance: SILDENAFIL CITRATE
  5. FLOLAN [Suspect]
     Active Substance: EPOPROSTENOL SODIUM
     Dosage: 22 NG/KG/MIN (CONCENTRATION 45,000 NG/ML, PUMP RATE 87 ML/DAY, VIAL STRENGTH 1.5 MG), CO
     Route: 042

REACTIONS (4)
  - Device related infection [Unknown]
  - Ill-defined disorder [Unknown]
  - Hospitalisation [Recovered/Resolved]
  - Catheter site infection [Unknown]

NARRATIVE: CASE EVENT DATE: 201510
